FAERS Safety Report 4541651-3 (Version None)
Quarter: 2004Q4

REPORT INFORMATION
  Report Type: 
  Country: None (occurrence: None)
  Receive Date: 20041227
  Receipt Date: 20041215
  Transmission Date: 20050328
  Serious: Yes (Death)
  Sender: FDA-Public Use
  Company Number: 04KOR0266

PATIENT
  Sex: Male

DRUGS (5)
  1. AGGRASTAT [Suspect]
     Indication: ACUTE CORONARY SYNDROME
     Dosage: 28 ML/H 30 MIN:14 ML/H 10 H 40
     Route: 042
     Dates: start: 20040513, end: 20040514
  2. ASPIRIN [Concomitant]
  3. CARVEDILOL [Concomitant]
  4. CLOPIDOGREL BISULFATE (CLOPIDOGREL SULFATE) [Concomitant]
  5. ENOXAPARIN SODIUM [Concomitant]

REACTIONS (2)
  - CARDIAC FAILURE [None]
  - CARDIOGENIC SHOCK [None]
